FAERS Safety Report 21881180 (Version 1)
Quarter: 2023Q1

REPORT INFORMATION
  Report Type: Report from Study
  Country: US (occurrence: US)
  Receive Date: 20230118
  Receipt Date: 20230118
  Transmission Date: 20230417
  Serious: No
  Sender: FDA-Public Use
  Company Number: US-ABBVIE-4219117

PATIENT
  Sex: Female

DRUGS (3)
  1. RINVOQ [Suspect]
     Active Substance: UPADACITINIB
     Indication: Rheumatoid arthritis
     Route: 048
     Dates: start: 20200424
  2. DIFLORASONE DIACETATE [Concomitant]
     Active Substance: DIFLORASONE DIACETATE
     Indication: Product used for unknown indication
     Dosage: OIN 0.05%
  3. FLURANDRENOL [Concomitant]
     Indication: Product used for unknown indication
     Dosage: LOT 0.05%

REACTIONS (1)
  - Rheumatoid arthritis [Not Recovered/Not Resolved]
